FAERS Safety Report 4613691-7 (Version None)
Quarter: 2005Q1

REPORT INFORMATION
  Report Type: 
  Country: None (occurrence: None)
  Receive Date: 20050318
  Receipt Date: 20050318
  Transmission Date: 20050727
  Serious: Yes (Hospitalization)
  Sender: FDA-Public Use
  Company Number: None

PATIENT
  Sex: Female
  Weight: 55.3388 kg

DRUGS (3)
  1. AUGMENTIN '125' [Suspect]
     Indication: SYSTEMIC ANTIBACTERIAL THERAPY
     Dosage: 500MG PO BID
     Route: 048
     Dates: end: 20040930
  2. DOCUSATE [Concomitant]
  3. LIQUID MVI [Concomitant]

REACTIONS (4)
  - ERYTHEMA [None]
  - FLUSHING [None]
  - RASH [None]
  - SWELLING FACE [None]
